FAERS Safety Report 6472412-6 (Version None)
Quarter: 2009Q4

REPORT INFORMATION
  Report Type: 
  Country: None (occurrence: None)
  Receive Date: 20091201
  Receipt Date: 20091117
  Transmission Date: 20100525
  Serious: Yes (Other)
  Sender: FDA-Public Use
  Company Number: 2009AL007435

PATIENT
  Age: 79 Year
  Sex: Male

DRUGS (12)
  1. MIRTAZAPINE [Suspect]
     Indication: DEPRESSION
     Dosage: 30 MG;QD;PO
     Route: 048
     Dates: start: 20061121, end: 20070103
  2. ATORVASTATIN CALCIUM [Concomitant]
  3. FLECAINIDE ACETATE [Concomitant]
  4. OMEPRAZOLE [Concomitant]
  5. VERAPAMIL [Concomitant]
  6. SOTALOL HCL [Concomitant]
  7. LIQUID PARAFFIN [Concomitant]
  8. ALENDRONIC ACID [Concomitant]
  9. HYDROXYCHLOROQUINE SULFATE [Concomitant]
  10. PREDNISOLONE [Concomitant]
  11. SOTALOL HCL [Concomitant]
  12. WARFARIN [Concomitant]

REACTIONS (3)
  - GENERALISED ERYTHEMA [None]
  - OEDEMA [None]
  - SKIN EXFOLIATION [None]
